FAERS Safety Report 7589149-2 (Version None)
Quarter: 2011Q3

REPORT INFORMATION
  Report Type: 
  Country: None (occurrence: None)
  Receive Date: 20110705
  Receipt Date: 20110222
  Transmission Date: 20111222
  Serious: No
  Sender: FDA-Public Use
  Company Number: US-BAYER-2011-051515

PATIENT
  Age: 30 Year
  Sex: Male
  Weight: 86 kg

DRUGS (2)
  1. ALBUTEROL SULFATE AUTOHALER [Concomitant]
  2. ALEVE (CAPLET) [Suspect]
     Indication: HEADACHE
     Dosage: 2 DF, ONCE
     Route: 048
     Dates: start: 20110219, end: 20110219

REACTIONS (1)
  - RASH [None]
